FAERS Safety Report 25129414 (Version 1)
Quarter: 2025Q1

REPORT INFORMATION
  Report Type: Spontaneous
  Country: US (occurrence: US)
  Receive Date: 20250327
  Receipt Date: 20250327
  Transmission Date: 20250408
  Serious: No
  Sender: AMGEN
  Company Number: US-AMGEN-USASP2025055972

PATIENT
  Age: 37 Year
  Sex: Female

DRUGS (2)
  1. TRASTUZUMAB [Suspect]
     Active Substance: TRASTUZUMAB
     Indication: Breast cancer metastatic
     Route: 065
  2. TUCATINIB [Concomitant]
     Active Substance: TUCATINIB
     Route: 065

REACTIONS (3)
  - Ventricular extrasystoles [Unknown]
  - Myocardial fibrosis [Unknown]
  - Ejection fraction decreased [Unknown]
